FAERS Safety Report 10375303 (Version 3)
Quarter: 2014Q3

REPORT INFORMATION
  Report Type: Spontaneous
  Country: JP (occurrence: None)
  Receive Date: 20140806
  Receipt Date: 20140917
  Transmission Date: 20150326
  Serious: Yes (Other)
  Sender: FDA-Public Use
  Company Number: JP-016624

PATIENT
  Age: 77 Year
  Sex: Male

DRUGS (6)
  1. KYTRIL [Concomitant]
     Active Substance: GRANISETRON HYDROCHLORIDE
  2. DEGARELIX (GONAX) [Suspect]
     Active Substance: DEGARELIX
     Indication: PROSTATE CANCER
     Route: 058
     Dates: start: 20140707, end: 20140707
  3. PARIET [Concomitant]
     Active Substance: RABEPRAZOLE SODIUM
  4. CASODEX [Suspect]
     Active Substance: BICALUTAMIDE
     Indication: PROSTATE CANCER
     Route: 048
     Dates: start: 20140707
  5. BERIZYM [Concomitant]
     Active Substance: CELLULASE\DIASTASE\LIPASE
  6. FLIVAS [Concomitant]
     Active Substance: NAFTOPIDIL

REACTIONS (4)
  - Blood potassium decreased [None]
  - Generalised oedema [None]
  - Blood creatinine increased [None]
  - Blood sodium decreased [None]

NARRATIVE: CASE EVENT DATE: 20140707
